FAERS Safety Report 5452377-6 (Version None)
Quarter: 2007Q3

REPORT INFORMATION
  Report Type: 
  Country: None (occurrence: None)
  Receive Date: 20070803
  Receipt Date: 20070504
  Transmission Date: 20080115
  Serious: Yes (Other)
  Sender: FDA-Public Use
  Company Number: 36864

PATIENT
  Age: 47 Year
  Sex: Female
  Weight: 57.1532 kg

DRUGS (6)
  1. PROPOFOL [Suspect]
     Indication: ANAESTHESIA
     Dosage: 200MG/OVER 20 MIN/IV
     Route: 042
     Dates: start: 20070423
  2. PROPOFOL [Suspect]
     Indication: COLONOSCOPY
     Dosage: 200MG/OVER 20 MIN/IV
     Route: 042
     Dates: start: 20070423
  3. URSO 250 [Concomitant]
  4. CHOLESTYRANIME [Concomitant]
  5. VERSED [Concomitant]
  6. FENTANYL [Concomitant]

REACTIONS (3)
  - INFLUENZA LIKE ILLNESS [None]
  - MYALGIA [None]
  - PAIN [None]
